FAERS Safety Report 5068773-5 (Version None)
Quarter: 2006Q3

REPORT INFORMATION
  Report Type: 
  Country: None (occurrence: None)
  Receive Date: 20060802
  Receipt Date: 20060323
  Transmission Date: 20061208
  Serious: No
  Sender: FDA-Public Use
  Company Number: US-BRISTOL-MYERS SQUIBB COMPANY-13326525

PATIENT
  Age: 65 Year
  Sex: Female
  Weight: 72 kg

DRUGS (4)
  1. COUMADIN [Suspect]
     Indication: MITRAL VALVE REPLACEMENT
     Dosage: 5MG EVERYDAY EXCEPT TUSEDAYS WHEN SHE TOOK 2.5 MG
     Dates: start: 19980101
  2. METOPROLOL [Concomitant]
     Dates: start: 19980101
  3. LIPITOR [Concomitant]
  4. SYNTHROID [Concomitant]

REACTIONS (4)
  - DIZZINESS [None]
  - INTERNATIONAL NORMALISED RATIO DECREASED [None]
  - NASOPHARYNGITIS [None]
  - STOMACH DISCOMFORT [None]
